FAERS Safety Report 7893648-3 (Version None)
Quarter: 2011Q4

REPORT INFORMATION
  Report Type: 
  Country: None (occurrence: None)
  Receive Date: 20111104
  Receipt Date: 20111025
  Transmission Date: 20120403
  Serious: Yes (Hospitalization)
  Sender: FDA-Public Use
  Company Number: IT-GLAXOSMITHKLINE-B0759817A

PATIENT
  Sex: Female

DRUGS (6)
  1. NEBIVOLOL HCL [Concomitant]
     Dosage: 2.5MG PER DAY
     Route: 065
  2. ARIXTRA [Suspect]
     Indication: DEEP VEIN THROMBOSIS
     Dosage: .4ML PER DAY
     Route: 058
     Dates: start: 20111002, end: 20111017
  3. FERROUS SULFATE TAB [Suspect]
     Indication: IRON DEFICIENCY ANAEMIA
     Dosage: 1U PER DAY
     Route: 065
     Dates: start: 20111012, end: 20111017
  4. LANSOPRAZOLE [Concomitant]
     Dosage: 30MG PER DAY
     Route: 065
  5. RAMIPRIL [Concomitant]
     Dosage: 2.5MG PER DAY
     Route: 065
  6. FENTANYL-100 [Concomitant]
     Dosage: 1PAT PER DAY
     Route: 062

REACTIONS (2)
  - ANAEMIA [None]
  - FAECES DISCOLOURED [None]
